FAERS Safety Report 13940130 (Version 1)
Quarter: 2017Q3

REPORT INFORMATION
  Report Type: Spontaneous
  Country: US (occurrence: None)
  Receive Date: 20170906
  Receipt Date: 20170906
  Transmission Date: 20171127
  Serious: Yes (Hospitalization, Disabling)
  Sender: FDA-Public Use
  Company Number: None

PATIENT
  Age: 94 Year
  Sex: Male
  Weight: 52.62 kg

DRUGS (11)
  1. FUROSEMIDE. [Concomitant]
     Active Substance: FUROSEMIDE
  2. ASPIRIN. [Concomitant]
     Active Substance: ASPIRIN
  3. BRILINTA [Suspect]
     Active Substance: TICAGRELOR
     Indication: DEVICE OCCLUSION
     Dosage: 2 PILLS PO, QD
     Route: 048
     Dates: start: 20170728, end: 20170804
  4. ATORVASTATIN [Concomitant]
     Active Substance: ATORVASTATIN
  5. LOSARTAN. [Concomitant]
     Active Substance: LOSARTAN
  6. ONE A DAY A REDS EYE VITAMIN [Concomitant]
  7. ENSURE [Concomitant]
     Active Substance: AMINO ACIDS\DEXTROSE\ELECTROLYTES NOS\SOYBEAN OIL\VITAMINS
  8. PLAVIX [Concomitant]
     Active Substance: CLOPIDOGREL BISULFATE
  9. METOPROLOL TARTRATE. [Concomitant]
     Active Substance: METOPROLOL TARTRATE
  10. POTASSIUM CHLORIDE. [Concomitant]
     Active Substance: POTASSIUM CHLORIDE
  11. BRILINTA [Suspect]
     Active Substance: TICAGRELOR
     Indication: PROPHYLAXIS
     Dosage: 2 PILLS PO, QD
     Route: 048
     Dates: start: 20170728, end: 20170804

REACTIONS (2)
  - General physical health deterioration [None]
  - Cardiac failure [None]

NARRATIVE: CASE EVENT DATE: 20170728
